FAERS Safety Report 6147532-6 (Version None)
Quarter: 2009Q2

REPORT INFORMATION
  Report Type: 
  Country: None (occurrence: None)
  Receive Date: 20090408
  Receipt Date: 20090223
  Transmission Date: 20091009
  Serious: No
  Sender: FDA-Public Use
  Company Number: US-BAYER-200910645BCC

PATIENT
  Age: 79 Year
  Sex: Male
  Weight: 113 kg

DRUGS (5)
  1. ALEVE [Suspect]
     Indication: ARTHRALGIA
     Dosage: TOTAL DAILY DOSE: 440 MG  UNIT DOSE: 220 MG
     Route: 048
     Dates: start: 20090218, end: 20090223
  2. SPIRIVA [Concomitant]
  3. TRAZODONE [Concomitant]
  4. BENADRYL [Concomitant]
  5. AMBIEN [Concomitant]

REACTIONS (3)
  - RASH PAPULAR [None]
  - RASH PRURITIC [None]
  - URTICARIA [None]
